FAERS Safety Report 24148502 (Version 3)
Quarter: 2024Q3

REPORT INFORMATION
  Report Type: Spontaneous
  Country: DE (occurrence: DE)
  Receive Date: 20240729
  Receipt Date: 20240814
  Transmission Date: 20241016
  Serious: Yes (Hospitalization, Other)
  Sender: MYLAN
  Company Number: DE-BAXTER-2024BAX021324

PATIENT
  Age: 17 Year
  Sex: Female
  Weight: 63.9 kg

DRUGS (31)
  1. METHOTREXATE [Suspect]
     Active Substance: METHOTREXATE
     Indication: Chemotherapy
     Dosage: 1790 MILLIGRAM, ONCE, ONGOING
     Route: 042
     Dates: start: 20240522, end: 20240524
  2. CYCLOPHOSPHAMIDE [Suspect]
     Active Substance: CYCLOPHOSPHAMIDE
     Indication: Chemotherapy
     Dosage: 358 MILLIGRAM, BID (TWICE A DAILY)
     Route: 042
     Dates: start: 20240523, end: 20240525
  3. CYCLOPHOSPHAMIDE [Suspect]
     Active Substance: CYCLOPHOSPHAMIDE
     Dosage: 358 MG, TWICE DAILY
     Route: 042
     Dates: start: 20240523, end: 20240525
  4. VINCRISTINE SULFATE [Suspect]
     Active Substance: VINCRISTINE SULFATE
     Indication: Chemotherapy
     Dosage: 2 MILLIGRAM, D1 AND D6
     Route: 042
     Dates: start: 20240522, end: 20240527
  5. VINCRISTINE SULFATE [Suspect]
     Active Substance: VINCRISTINE SULFATE
     Dosage: 2 MG, D1 AND D6
     Route: 042
     Dates: start: 20240522, end: 20240527
  6. CYTARABINE [Suspect]
     Active Substance: CYTARABINE
     Indication: Chemotherapy
     Dosage: 3580 MILLIGRAM, BID
     Route: 042
     Dates: start: 20240526, end: 20240526
  7. CYTARABINE [Suspect]
     Active Substance: CYTARABINE
     Dosage: 3580 MG, TWICE DAILY
     Route: 042
     Dates: start: 20240526, end: 20240526
  8. PEGASPARGASE [Concomitant]
     Active Substance: PEGASPARGASE
     Indication: Chemotherapy
     Dosage: 1790, SINGLE
     Route: 042
     Dates: start: 20240527, end: 20240527
  9. DEXAMETHASONE [Concomitant]
     Active Substance: DEXAMETHASONE
     Indication: Chemotherapy
     Dosage: 9 MILLIGRAM, BID ( TWICE DAILY)
     Route: 042
     Dates: start: 20240522, end: 20240527
  10. INOTUZUMAB OZOGAMICIN [Concomitant]
     Active Substance: INOTUZUMAB OZOGAMICIN
     Indication: Leukaemia recurrent
     Dosage: 0.94 MILLIGRAM, QW
     Route: 042
     Dates: start: 20240422, end: 20240506
  11. AMBISOME [Concomitant]
     Active Substance: AMPHOTERICIN B
     Indication: Antifungal prophylaxis
     Dosage: 200 MILLIGRAM, ONCE WEEKLY
     Route: 042
     Dates: start: 20240419, end: 20240507
  12. AMBISOME [Concomitant]
     Active Substance: AMPHOTERICIN B
     Indication: Leukaemia recurrent
  13. COTRIM [Concomitant]
     Active Substance: SULFAMETHOXAZOLE\TRIMETHOPRIM
     Indication: Infection prophylaxis
     Dosage: UNK, ONGOING
     Route: 048
  14. COTRIM [Concomitant]
     Active Substance: SULFAMETHOXAZOLE\TRIMETHOPRIM
     Dosage: UNK, ONGOING
     Route: 048
  15. VANCOMYCIN [Concomitant]
     Active Substance: VANCOMYCIN
     Indication: Leukaemia recurrent
     Dosage: 500 MILLIGRAM, QD, ONCE DAILY
     Route: 065
     Dates: start: 20240428, end: 20240501
  16. VANCOMYCIN [Concomitant]
     Active Substance: VANCOMYCIN
     Dosage: 500 MILLIGRAM, BID, TWICE DAILY
     Route: 065
     Dates: start: 20240502, end: 20240502
  17. COTRIMOXAZOLE [Concomitant]
     Active Substance: SULFAMETHOXAZOLE\TRIMETHOPRIM
     Indication: Leukaemia recurrent
     Dosage: 16 MILLIGRAM, TWICE WEEKLY
     Route: 048
     Dates: start: 20240420, end: 20240505
  18. OMEPRAZOLE [Concomitant]
     Active Substance: OMEPRAZOLE
     Indication: Leukaemia recurrent
     Dosage: 20 MILLIGRAM, QD
     Route: 065
     Dates: start: 20240418, end: 20240501
  19. PIPERACILLIN SODIUM\TAZOBACTAM SODIUM [Concomitant]
     Active Substance: PIPERACILLIN SODIUM\TAZOBACTAM SODIUM
     Indication: Leukaemia recurrent
     Dosage: 4 GRAM, QD
     Route: 065
     Dates: start: 20240503, end: 20240503
  20. PIPERACILLIN SODIUM\TAZOBACTAM SODIUM [Concomitant]
     Active Substance: PIPERACILLIN SODIUM\TAZOBACTAM SODIUM
     Dosage: 4 GRAM, TID
     Route: 065
     Dates: start: 20240423, end: 20240502
  21. LACTULOSE [Concomitant]
     Active Substance: LACTULOSE
     Indication: Leukaemia recurrent
     Dosage: 5 MILLILITER, BID
     Route: 048
     Dates: start: 20240506, end: 20240506
  22. LACTULOSE [Concomitant]
     Active Substance: LACTULOSE
     Dosage: 5 MILLILITER, QD
     Route: 048
     Dates: start: 20240503, end: 20240505
  23. LACTULOSE [Concomitant]
     Active Substance: LACTULOSE
     Dosage: 5 MILLILITER, QD
     Route: 048
     Dates: start: 20240507, end: 20240507
  24. ACETAMINOPHEN [Concomitant]
     Active Substance: ACETAMINOPHEN
     Indication: Leukaemia recurrent
     Dosage: 500 MILLIGRAM, QD
     Route: 065
     Dates: start: 20240504, end: 20240504
  25. ACETAMINOPHEN [Concomitant]
     Active Substance: ACETAMINOPHEN
     Dosage: 500 MILLIGRAM, TID
     Route: 065
     Dates: start: 20240502, end: 20240502
  26. ACETAMINOPHEN [Concomitant]
     Active Substance: ACETAMINOPHEN
     Dosage: 500 MILLIGRAM, BID
     Route: 065
     Dates: start: 20240503, end: 20240503
  27. ACETAMINOPHEN [Concomitant]
     Active Substance: ACETAMINOPHEN
     Dosage: 500 MILLIGRAM, BID
     Route: 065
     Dates: start: 20240429, end: 20240501
  28. CASPOFUNGIN [Concomitant]
     Active Substance: CASPOFUNGIN
     Indication: Leukaemia recurrent
     Dosage: 50 MILLIGRAM, QD, ONCE DAILY
     Route: 065
     Dates: start: 20240502, end: 20240506
  29. CASPOFUNGIN [Concomitant]
     Active Substance: CASPOFUNGIN
     Dosage: 70 MILLIGRAM, QD, ONCE DAILY
     Route: 065
     Dates: start: 20240501, end: 20240501
  30. ONDANSETRON [Concomitant]
     Active Substance: ONDANSETRON
     Indication: Leukaemia recurrent
     Dosage: 8 MILLIGRAM, BID
     Route: 065
     Dates: start: 20240429, end: 20240429
  31. POTASSIUM CHLORIDE [Concomitant]
     Active Substance: POTASSIUM CHLORIDE
     Indication: Leukaemia recurrent
     Dosage: UNK, 5 CAPSULE
     Route: 048
     Dates: start: 20240428, end: 20240503

REACTIONS (2)
  - Bone marrow failure [Recovered/Resolved]
  - Mucosal inflammation [Recovered/Resolved]

NARRATIVE: CASE EVENT DATE: 20240529
